FAERS Safety Report 14289248 (Version 1)
Quarter: 2017Q4

REPORT INFORMATION
  Report Type: Spontaneous
  Country: CO (occurrence: CO)
  Receive Date: 20171214
  Receipt Date: 20171214
  Transmission Date: 20180321
  Serious: Yes (Life-Threatening)
  Sender: FDA-Public Use
  Company Number: CO-BAXTER-2017BAX041526

PATIENT
  Age: 78 Year
  Sex: Male

DRUGS (1)
  1. CLORURO DE SODIO 0.9% [Suspect]
     Active Substance: SODIUM CHLORIDE
     Indication: PRODUCT USED FOR UNKNOWN INDICATION
     Route: 065

REACTIONS (2)
  - Bacterial infection [Unknown]
  - Nosocomial infection [Unknown]
